FAERS Safety Report 25771792 (Version 1)
Quarter: 2025Q3

REPORT INFORMATION
  Report Type: Spontaneous
  Country: US (occurrence: US)
  Receive Date: 20250908
  Receipt Date: 20250908
  Transmission Date: 20251020
  Serious: Yes (Other)
  Sender: STRIDES
  Company Number: US-STRIDES ARCOLAB LIMITED-2025SP010891

PATIENT
  Age: 6 Decade
  Sex: Male

DRUGS (9)
  1. METHOTREXATE [Suspect]
     Active Substance: METHOTREXATE
     Indication: Dermatomyositis
     Route: 065
  2. MYCOPHENOLATE MOFETIL [Suspect]
     Active Substance: MYCOPHENOLATE MOFETIL
     Indication: Dermatomyositis
     Route: 065
  3. ATORVASTATIN CALCIUM [Suspect]
     Active Substance: ATORVASTATIN CALCIUM
     Indication: Product used for unknown indication
     Route: 065
  4. AZATHIOPRINE [Suspect]
     Active Substance: AZATHIOPRINE
     Indication: Dermatomyositis
     Route: 065
  5. TOFACITINIB [Suspect]
     Active Substance: TOFACITINIB
     Indication: Dermatomyositis
     Route: 065
  6. ANIFROLUMAB [Concomitant]
     Active Substance: ANIFROLUMAB
     Indication: Dermatomyositis
     Route: 065
  7. ANIFROLUMAB [Concomitant]
     Active Substance: ANIFROLUMAB
     Route: 065
  8. Immunoglobulin [Concomitant]
     Indication: Dermatomyositis
     Route: 065
  9. PREDNISONE [Concomitant]
     Active Substance: PREDNISONE
     Indication: Dermatomyositis
     Route: 065

REACTIONS (4)
  - Treatment failure [Unknown]
  - Blood creatine phosphokinase increased [Recovering/Resolving]
  - Hypertransaminasaemia [Unknown]
  - Off label use [Unknown]
